FAERS Safety Report 10185495 (Version 3)
Quarter: 2014Q3

REPORT INFORMATION
  Report Type: Report from Study
  Country: BR (occurrence: BR)
  Receive Date: 20140521
  Receipt Date: 20140724
  Transmission Date: 20150326
  Serious: Yes (Other)
  Sender: FDA-Public Use
  Company Number: PHHY2013BR127211

PATIENT
  Sex: Female
  Weight: 61 kg

DRUGS (10)
  1. ACLASTA [Suspect]
     Active Substance: ZOLEDRONIC ACID
     Dosage: 5 MG, EVERY YEAR (1 APPLICATION ANNUALLY)
     Route: 042
     Dates: start: 2013, end: 201405
  2. SIMVASTATIN. [Concomitant]
     Active Substance: SIMVASTATIN
     Indication: BLOOD CHOLESTEROL INCREASED
     Dosage: 1 DF, DAILY
     Route: 048
     Dates: start: 2011
  3. ADDERA D3 [Concomitant]
     Active Substance: CHOLECALCIFEROL
     Indication: CALCIUM DEFICIENCY
     Dosage: 6 DROPS, QD
     Route: 048
     Dates: start: 2009
  4. BROMAZEPAN [Concomitant]
     Indication: DEPRESSION
     Dosage: 1 DF, DAILY
     Route: 048
     Dates: start: 1993
  5. OMEPRAZOLE. [Concomitant]
     Active Substance: OMEPRAZOLE
     Indication: GASTRITIS
     Dosage: 1 DF, DAILY
     Route: 048
     Dates: start: 2005
  6. OSCAL D [Concomitant]
     Active Substance: CALCIUM CARBONATE\CHOLECALCIFEROL
     Indication: OSTEOPOROSIS
     Dosage: 1 DF, DAILY
     Dates: start: 2013
  7. CALDE [Concomitant]
     Active Substance: CALCIUM CARBONATE\CHOLECALCIFEROL
     Indication: CALCIUM DEFICIENCY
     Dosage: 1 DF, DAILY
     Route: 048
  8. ACLASTA [Suspect]
     Active Substance: ZOLEDRONIC ACID
     Indication: OSTEOPOROSIS
     Dosage: 5 MG, EVERY YEAR (1 APPLICATION ANNUALLY)
     Route: 042
     Dates: start: 2012
  9. METHYLDOPA. [Concomitant]
     Active Substance: METHYLDOPA
     Indication: HYPERTENSION
     Dosage: 1 DF, DAILY
     Dates: start: 2003
  10. ADDERA D3 [Concomitant]
     Active Substance: CHOLECALCIFEROL
     Indication: BLOOD CHOLESTEROL INCREASED
     Dosage: 6 DROPS, QD
     Route: 048
     Dates: start: 2011

REACTIONS (8)
  - Depressed mood [Recovering/Resolving]
  - Fall [Recovered/Resolved]
  - Arthritis [Recovering/Resolving]
  - Depression [Recovering/Resolving]
  - Upper limb fracture [Recovering/Resolving]
  - Infective tenosynovitis [Recovering/Resolving]
  - Joint injury [Recovered/Resolved]
  - Tendonitis [Not Recovered/Not Resolved]
